FAERS Safety Report 4848621-6 (Version None)
Quarter: 2005Q4

REPORT INFORMATION
  Report Type: 
  Country: None (occurrence: None)
  Receive Date: 20051206
  Receipt Date: 20051124
  Transmission Date: 20060501
  Serious: Yes (Life-Threatening, Hospitalization, Other)
  Sender: FDA-Public Use
  Company Number: 2005143979

PATIENT
  Age: 12 Year
  Sex: Male

DRUGS (9)
  1. SOLU-MEDROL [Suspect]
     Indication: ACUTE LYMPHOCYTIC LEUKAEMIA
     Dosage: 60 MG (20 MG, 3 IN 1 D), INTRAVENOUS
     Route: 042
     Dates: start: 20050903, end: 20050922
  2. HYDROCORTISONE SODIUM SUCCINATE [Suspect]
     Dosage: 15 MG (15 MG, CYCLICAL), INTRATHECAL
     Route: 037
  3. PREDNISONE [Suspect]
     Indication: ACUTE LYMPHOCYTIC LEUKAEMIA
     Dosage: 60 MG (1 D), ORAL
     Route: 048
     Dates: start: 20050923, end: 20050924
  4. VINCRISTINE SULFATEE (VINCRISTINE SULFATE) [Concomitant]
  5. DAUNORUBICIN HCL [Concomitant]
  6. L-ASPARAGINASE (ASPARAGINASE) [Concomitant]
  7. METHOTREXATE [Concomitant]
  8. CYTARABINE [Concomitant]
  9. OMEPRAZOLE [Concomitant]

REACTIONS (6)
  - ANAEMIA [None]
  - GASTRIC ULCER [None]
  - HAEMODYNAMIC INSTABILITY [None]
  - LOSS OF CONSCIOUSNESS [None]
  - MALAISE [None]
  - MELAENA [None]
